FAERS Safety Report 16308268 (Version 4)
Quarter: 2022Q1

REPORT INFORMATION
  Report Type: Report from Study
  Country: BR (occurrence: BR)
  Receive Date: 20190514
  Receipt Date: 20220114
  Transmission Date: 20220423
  Serious: Yes (Death, Hospitalization, Other)
  Sender: FDA-Public Use
  Company Number: BR-BOEHRINGERINGELHEIM-2018-BI-056997

PATIENT
  Age: 69 Year
  Sex: Female
  Weight: 53 kg

DRUGS (8)
  1. OFEV [Suspect]
     Active Substance: NINTEDANIB
     Indication: Idiopathic pulmonary fibrosis
     Route: 048
     Dates: start: 2016
  2. OFEV [Suspect]
     Active Substance: NINTEDANIB
     Route: 048
     Dates: start: 2016, end: 201907
  3. CODEINE [Suspect]
     Active Substance: CODEINE
     Indication: Cough
     Route: 065
  4. Dexa [Concomitant]
     Indication: Cough
     Route: 048
     Dates: start: 201902
  5. LOSARTAN [Concomitant]
     Active Substance: LOSARTAN
     Indication: Hypertension
     Route: 048
     Dates: start: 2018
  6. ROSUVASTATIN CALCIUM [Concomitant]
     Active Substance: ROSUVASTATIN CALCIUM
     Indication: Blood cholesterol abnormal
     Route: 048
     Dates: start: 20181119
  7. ASPIRIN [Concomitant]
     Active Substance: ASPIRIN
     Indication: Blood disorder
     Route: 048
     Dates: start: 20181119
  8. OMEPRAZOLE [Concomitant]
     Active Substance: OMEPRAZOLE
     Indication: Gastric disorder
     Route: 048
     Dates: start: 2017

REACTIONS (27)
  - Death [Fatal]
  - Idiopathic pulmonary fibrosis [Not Recovered/Not Resolved]
  - Decreased appetite [Recovered/Resolved]
  - Pneumonia [Recovered/Resolved]
  - Fatigue [Not Recovered/Not Resolved]
  - Pain [Recovered/Resolved]
  - Drug use disorder [Unknown]
  - Diarrhoea [Not Recovered/Not Resolved]
  - Weight decreased [Not Recovered/Not Resolved]
  - Asthenia [Not Recovered/Not Resolved]
  - Depression [Recovered/Resolved]
  - Restless legs syndrome [Not Recovered/Not Resolved]
  - Nervousness [Not Recovered/Not Resolved]
  - Anxiety [Not Recovered/Not Resolved]
  - Back pain [Not Recovered/Not Resolved]
  - Cough [Not Recovered/Not Resolved]
  - Blood glucose abnormal [Recovered/Resolved]
  - Blood triglycerides abnormal [Recovered/Resolved]
  - Blood cholesterol abnormal [Recovered/Resolved]
  - Akathisia [Not Recovered/Not Resolved]
  - Depression [Recovered/Resolved]
  - Muscular weakness [Unknown]
  - Blood cholesterol increased [Not Recovered/Not Resolved]
  - Drug ineffective [Unknown]
  - Depressed mood [Recovered/Resolved]
  - Pain in extremity [Not Recovered/Not Resolved]
  - Asthenia [Unknown]

NARRATIVE: CASE EVENT DATE: 20160101
